FAERS Safety Report 4344460-3 (Version None)
Quarter: 2004Q2

REPORT INFORMATION
  Report Type: 
  Country: None (occurrence: None)
  Receive Date: 20040422
  Receipt Date: 20040413
  Transmission Date: 20050107
  Serious: Yes (Other)
  Sender: FDA-Public Use
  Company Number: PHBS2004JP05001

PATIENT
  Age: 35 Year
  Sex: Male

DRUGS (4)
  1. CYCLOSPORINE [Suspect]
     Indication: RENAL AND PANCREAS TRANSPLANT
     Route: 065
     Dates: start: 20010108
  2. MYCOPHENOLATE MOFETIL [Suspect]
     Indication: RENAL AND PANCREAS TRANSPLANT
     Route: 065
     Dates: start: 20010108
  3. STEROIDS NOS [Suspect]
     Indication: RENAL AND PANCREAS TRANSPLANT
     Route: 065
  4. INSULIN [Concomitant]

REACTIONS (3)
  - PHLEBOTHROMBOSIS [None]
  - SURGERY [None]
  - TRANSPLANT REJECTION [None]
